FAERS Safety Report 7593486-5 (Version None)
Quarter: 2011Q3

REPORT INFORMATION
  Report Type: 
  Country: None (occurrence: None)
  Receive Date: 20110706
  Receipt Date: 20110623
  Transmission Date: 20111222
  Serious: No
  Sender: FDA-Public Use
  Company Number: US-B.I. PHARMACEUTICALS,INC./RIDGEFIELD-2011-BP-16259BP

PATIENT
  Sex: Female

DRUGS (11)
  1. BUDESONIDE [Concomitant]
     Indication: ASTHMA
     Dosage: 0.5 MG
     Route: 055
  2. TRAMADOL HCL [Concomitant]
     Indication: SCOLIOSIS
     Dosage: 300 MG
     Route: 048
  3. PRADAXA [Suspect]
     Indication: ATRIAL FIBRILLATION
     Dosage: 300 MG
     Route: 048
     Dates: start: 20110620
  4. VERPAMIL HCL [Concomitant]
     Indication: HYPERTENSION
     Dosage: 360 MG
     Route: 048
  5. GABAPENTIN [Concomitant]
     Indication: SCOLIOSIS
     Dosage: 300 MG
     Route: 048
  6. FOSAMAX [Concomitant]
     Indication: SCOLIOSIS
     Dosage: 70 MG
     Route: 048
  7. IPRATROPIUM BROMIDE [Concomitant]
     Indication: ASTHMA
     Dosage: 30 MG
     Route: 055
  8. PRILOSEC [Concomitant]
     Indication: GASTROOESOPHAGEAL REFLUX DISEASE
     Dosage: 40 MG
     Route: 048
  9. ZANTAC [Concomitant]
     Indication: GASTROOESOPHAGEAL REFLUX DISEASE
     Dosage: 300 MG
     Route: 048
  10. ZOCOR [Concomitant]
     Indication: BLOOD CHOLESTEROL INCREASED
     Dosage: 40 MG
     Route: 048
  11. FLEXERIL [Concomitant]
     Indication: SCOLIOSIS
     Dosage: 10 MG
     Route: 048

REACTIONS (1)
  - FAECES DISCOLOURED [None]
